FAERS Safety Report 7826803-9 (Version None)
Quarter: 2011Q4

REPORT INFORMATION
  Report Type: 
  Country: None (occurrence: None)
  Receive Date: 20111020
  Receipt Date: 20111012
  Transmission Date: 20120403
  Serious: Yes (Congenital Anomaly)
  Sender: FDA-Public Use
  Company Number: US-UCBSA-8038009

PATIENT
  Age: 4 Month
  Sex: Male
  Weight: 2.72 kg

DRUGS (6)
  1. KEPPRA [Suspect]
     Indication: EPILEPSY
     Route: 064
     Dates: end: 20080801
  2. CELEXA [Concomitant]
     Indication: DEPRESSION
     Dosage: DOSE FREQ.: DAILY
     Route: 064
     Dates: start: 20080620, end: 20080905
  3. EXPECTA [Concomitant]
     Route: 064
  4. FOLIC ACID [Concomitant]
     Indication: PREGNANCY
     Dosage: DOSE FREQ.: DAILY
     Route: 064
     Dates: end: 20080905
  5. MULTI-VITAMINS [Concomitant]
     Indication: PREGNANCY
     Dosage: DOSE FREQ.: DAILY
     Route: 064
     Dates: end: 20080905
  6. ZANTAC [Concomitant]
     Route: 064

REACTIONS (9)
  - MATERNAL EXPOSURE DURING PREGNANCY [None]
  - JAUNDICE NEONATAL [None]
  - HAEMANGIOMA [None]
  - WEIGHT GAIN POOR [None]
  - DACRYOSTENOSIS ACQUIRED [None]
  - POLYDACTYLY [None]
  - VOMITING [None]
  - GASTROOESOPHAGEAL REFLUX DISEASE [None]
  - UPPER RESPIRATORY TRACT INFECTION [None]
